FAERS Safety Report 6667446-2 (Version None)
Quarter: 2010Q2

REPORT INFORMATION
  Report Type: 
  Country: None (occurrence: None)
  Receive Date: 20100405
  Receipt Date: 20100325
  Transmission Date: 20101027
  Serious: Yes (Hospitalization, Other)
  Sender: FDA-Public Use
  Company Number: JP-ROCHE-683615

PATIENT
  Sex: Male
  Weight: 67 kg

DRUGS (25)
  1. XELODA [Suspect]
     Indication: LARGE INTESTINE CARCINOMA
     Dosage: DRUG REPORTED AS; XELODA 300(CAPECITABINE)
     Route: 048
     Dates: start: 20100106, end: 20100120
  2. AVASTIN [Suspect]
     Indication: ANAL CANCER METASTATIC
     Route: 041
     Dates: start: 20080423, end: 20080625
  3. AVASTIN [Suspect]
     Route: 041
     Dates: start: 20080709, end: 20090225
  4. AVASTIN [Suspect]
     Route: 041
     Dates: start: 20090722, end: 20100106
  5. ELPLAT [Concomitant]
     Route: 041
     Dates: start: 20090722, end: 20091216
  6. ELPLAT [Concomitant]
     Route: 041
     Dates: start: 20100106, end: 20100106
  7. FLUOROURACIL [Concomitant]
     Route: 040
     Dates: start: 20080423, end: 20090225
  8. FLUOROURACIL [Concomitant]
     Route: 040
     Dates: start: 20080423, end: 20090201
  9. FLUOROURACIL [Concomitant]
     Route: 040
     Dates: start: 20090610, end: 20090708
  10. FLUOROURACIL [Concomitant]
     Route: 040
     Dates: start: 20090722, end: 20091216
  11. LEVOFOLINATE [Concomitant]
     Route: 041
     Dates: start: 20080423, end: 20090225
  12. LEVOFOLINATE [Concomitant]
     Route: 041
     Dates: start: 20090610, end: 20090708
  13. LEVOFOLINATE [Concomitant]
     Route: 041
     Dates: start: 20090722, end: 20091216
  14. LEVOFOLINATE [Concomitant]
     Route: 041
     Dates: start: 20100106, end: 20100106
  15. TOPOTECAN [Concomitant]
     Route: 041
     Dates: start: 20080423, end: 20080625
  16. TOPOTECAN [Concomitant]
     Route: 041
     Dates: start: 20080709, end: 20090225
  17. TOPOTECAN [Concomitant]
     Route: 041
     Dates: start: 20090318, end: 20090527
  18. TOPOTECAN [Concomitant]
     Route: 041
     Dates: start: 20090610, end: 20090708
  19. ERBITUX [Suspect]
     Route: 041
     Dates: start: 20090318, end: 20090527
  20. ERBITUX [Concomitant]
     Route: 041
     Dates: start: 20090610, end: 20090708
  21. INDISETRON HYDROCHLORIDE [Concomitant]
     Dosage: DRUG NAME: SINSERON, TAKEN AS NEEDED
     Route: 048
     Dates: start: 20100106, end: 20100106
  22. GASTROM [Concomitant]
     Dosage: FORM: GRANULATED POWDER
     Route: 048
     Dates: start: 20100106
  23. OMEPRAL [Concomitant]
     Dosage: FORM: ENTERIC COATING DRUG
     Route: 048
     Dates: start: 20100106
  24. CELCOX [Concomitant]
     Route: 048
     Dates: start: 20100106, end: 20100127
  25. DECADRON [Concomitant]
     Dosage: TAKEN AS NEEDED.
     Route: 048
     Dates: start: 20100106, end: 20100108

REACTIONS (6)
  - DIABETIC KETOACIDOSIS [None]
  - DIARRHOEA [None]
  - NAUSEA [None]
  - RENAL FAILURE ACUTE [None]
  - STOMATITIS [None]
  - VOMITING [None]
